FAERS Safety Report 11399392 (Version 1)
Quarter: 2015Q3

REPORT INFORMATION
  Report Type: Spontaneous
  Country: US (occurrence: US)
  Receive Date: 20150820
  Receipt Date: 20150820
  Transmission Date: 20151125
  Serious: No
  Sender: FDA-Public Use
  Company Number: US-MERZ NORTH AMERICA, INC.-15MRZ-00440

PATIENT
  Sex: Female

DRUGS (1)
  1. XEOMIN [Suspect]
     Active Substance: INCOBOTULINUMTOXINA
     Indication: SKIN WRINKLING

REACTIONS (3)
  - Eyelid ptosis [Not Recovered/Not Resolved]
  - Asthenopia [Not Recovered/Not Resolved]
  - Eye swelling [Not Recovered/Not Resolved]
